FAERS Safety Report 9778568 (Version 1)
Quarter: 2013Q4

REPORT INFORMATION
  Report Type: Spontaneous
  Country: US (occurrence: None)
  Receive Date: 20131220
  Receipt Date: 20131220
  Transmission Date: 20140711
  Serious: Yes (Hospitalization)
  Sender: FDA-Public Use
  Company Number: None

PATIENT
  Age: 88 Year
  Sex: Male

DRUGS (1)
  1. BICALUTAMIDE [Suspect]
     Indication: PROSTATE CANCER
     Route: 048
     Dates: start: 20130315, end: 20130901

REACTIONS (5)
  - Vomiting [None]
  - Abdominal pain [None]
  - Agitation [None]
  - Abnormal behaviour [None]
  - Hepatotoxicity [None]
